FAERS Safety Report 7251920-4 (Version None)
Quarter: 2011Q1

REPORT INFORMATION
  Report Type: 
  Country: None (occurrence: None)
  Receive Date: 20110128
  Receipt Date: 20100106
  Transmission Date: 20110831
  Serious: No
  Sender: FDA-Public Use
  Company Number: US-ABBOTT-10P-163-0618584-00

PATIENT
  Sex: Male
  Weight: 107.6 kg

DRUGS (2)
  1. HUMIRA [Suspect]
     Indication: ANKYLOSING SPONDYLITIS
     Dates: start: 20090101, end: 20090601
  2. HUMIRA [Suspect]
     Dates: start: 20090901

REACTIONS (2)
  - NAUSEA [None]
  - HEADACHE [None]
